FAERS Safety Report 25218925 (Version 1)
Quarter: 2025Q2

REPORT INFORMATION
  Report Type: Spontaneous
  Country: DE (occurrence: DE)
  Receive Date: 20250421
  Receipt Date: 20250421
  Transmission Date: 20250716
  Serious: Yes (Congenital Anomaly)
  Sender: SANOFI AVENTIS
  Company Number: DE-EMB-M202308075-1

PATIENT
  Sex: Female
  Weight: 4.24 kg

DRUGS (1)
  1. DUPIXENT [Suspect]
     Active Substance: DUPILUMAB
     Indication: Dermatitis atopic
     Dosage: 300 MG, QOW
     Route: 064
     Dates: start: 202308, end: 202309

REACTIONS (1)
  - Congenital renal cyst [Not Recovered/Not Resolved]

NARRATIVE: CASE EVENT DATE: 20240601
